FAERS Safety Report 18772963 (Version 1)
Quarter: 2021Q1

REPORT INFORMATION
  Report Type: Spontaneous
  Country: CA (occurrence: CA)
  Receive Date: 20210122
  Receipt Date: 20210122
  Transmission Date: 20210419
  Serious: Yes (Life-Threatening, Hospitalization)
  Sender: FDA-Public Use
  Company Number: CA-009507513-2101CAN009755

PATIENT
  Age: 58 Year
  Sex: Male

DRUGS (3)
  1. EMEND (FOSAPREPITANT DIMEGLUMINE) [Suspect]
     Active Substance: FOSAPREPITANT DIMEGLUMINE
     Dosage: 150.0 MILLIGRAM, UNK, DOSAGE FORM: POWDER FOR SOLUTION INTRAVENOUS
     Route: 042
  2. DEXAMETHASONE. [Concomitant]
     Active Substance: DEXAMETHASONE
     Dosage: DOSAGE FORM: NOT SPECIFIED
     Route: 065
  3. ZOFRAN [Concomitant]
     Active Substance: ONDANSETRON HYDROCHLORIDE
     Dosage: DOSAGE FORM: NOT SPECIFIED
     Route: 065

REACTIONS (10)
  - Dyspnoea [Unknown]
  - Chest pain [Unknown]
  - Wheezing [Unknown]
  - Mini-tracheostomy [Unknown]
  - Anaphylactic reaction [Unknown]
  - Restlessness [Unknown]
  - Visual impairment [Unknown]
  - Unresponsive to stimuli [Unknown]
  - Feeling hot [Unknown]
  - Pulseless electrical activity [Unknown]
